FAERS Safety Report 5410275-8 (Version None)
Quarter: 2007Q3

REPORT INFORMATION
  Report Type: 
  Country: None (occurrence: None)
  Receive Date: 20070808
  Receipt Date: 20070725
  Transmission Date: 20080115
  Serious: Yes (Hospitalization, Disabling)
  Sender: FDA-Public Use
  Company Number: RENA-12210

PATIENT
  Age: 48 Year
  Sex: Male
  Weight: 74 kg

DRUGS (7)
  1. RENAGEL [Suspect]
     Indication: HYPERPHOSPHATAEMIA
     Dosage: 3.2 G TID PO
     Route: 048
     Dates: start: 19990101, end: 20070618
  2. EPOGEN. MFR: AMGEN [Concomitant]
  3. VENOFER. MFR: VIFOR [Concomitant]
  4. TOPAMAX. MFR: JANSSEN-CILAG [Concomitant]
  5. WARFARIN SODIUM [Concomitant]
  6. ASCORBIC ACID [Concomitant]
  7. CALCIUM WITH VITAMIN D. MFR: NOT SPECIFIED [Concomitant]

REACTIONS (3)
  - FOOT AMPUTATION [None]
  - GANGRENE [None]
  - HYPOCALCAEMIA [None]
